FAERS Safety Report 20733568 (Version 2)
Quarter: 2022Q2

REPORT INFORMATION
  Report Type: Spontaneous
  Country: US (occurrence: US)
  Receive Date: 20220421
  Receipt Date: 20220609
  Transmission Date: 20220721
  Serious: No
  Sender: FDA-Public Use
  Company Number: US-TEVA-2022-US-2021931

PATIENT
  Age: 64 Year
  Sex: Female

DRUGS (4)
  1. IRBESARTAN AND HYDROCHLOROTHIAZIDE [Suspect]
     Active Substance: HYDROCHLOROTHIAZIDE\IRBESARTAN
     Indication: Hypertension
     Dosage: 1 DOSAGE FORMS DAILY; FORM STRENGTH: 150-12.5 MG-MG
     Route: 065
     Dates: start: 20211221
  2. CELEBREX [Concomitant]
     Active Substance: CELECOXIB
     Dosage: 400 MILLIGRAM DAILY;
  3. AVALIDE [Concomitant]
     Active Substance: HYDROCHLOROTHIAZIDE\IRBESARTAN
     Dosage: 150 MG/12.5 MG
  4. GABAPENTIN [Concomitant]
     Active Substance: GABAPENTIN
     Dosage: 600 MILLIGRAM DAILY;

REACTIONS (4)
  - Blood pressure fluctuation [Recovered/Resolved]
  - Hypotension [Unknown]
  - Expired product administered [Unknown]
  - Feeling abnormal [Recovered/Resolved]
